FAERS Safety Report 4390830-7 (Version None)
Quarter: 2004Q3

REPORT INFORMATION
  Report Type: 
  Country: None (occurrence: None)
  Receive Date: 20040706
  Receipt Date: 20040706
  Transmission Date: 20050211
  Serious: Yes (Other)
  Sender: FDA-Public Use
  Company Number: None

PATIENT
  Sex: Male
  Weight: 64.4108 kg

DRUGS (2)
  1. ENALAPRIL 10 MG LEK PHARMA-CAREMARK- [Suspect]
     Indication: BLOOD PRESSURE
     Dosage: 1 TABLET DAILY ORAL
     Route: 048
  2. ENALAPRIL 10 MG TEVA-ECKARD- [Suspect]
     Indication: BLOOD PRESSURE
     Dosage: 1 TABLET DAILY ORAL
     Route: 048

REACTIONS (2)
  - DRUG INEFFECTIVE [None]
  - PHARMACEUTICAL PRODUCT COMPLAINT [None]
